FAERS Safety Report 6806687-8 (Version None)
Quarter: 2010Q2

REPORT INFORMATION
  Report Type: 
  Country: None (occurrence: None)
  Receive Date: 20100629
  Receipt Date: 20080415
  Transmission Date: 20101027
  Serious: No
  Sender: FDA-Public Use
  Company Number: US-PFIZER INC-2008033442

PATIENT
  Sex: Male
  Weight: 75.75 kg

DRUGS (10)
  1. ALDACTONE [Suspect]
     Indication: MYOCARDIAL INFARCTION
  2. LASIX [Concomitant]
  3. TOPROL-XL [Concomitant]
     Indication: CARDIAC DISORDER
  4. ACETYLSALICYLIC ACID [Concomitant]
  5. VITAMIN C [Concomitant]
  6. VITAMIN E [Concomitant]
  7. SIMVASTATIN [Concomitant]
  8. WARFARIN SODIUM [Concomitant]
  9. AVODART [Concomitant]
  10. VYTORIN [Concomitant]

REACTIONS (1)
  - BREAST SWELLING [None]
